FAERS Safety Report 8602622-0 (Version None)
Quarter: 2012Q3

REPORT INFORMATION
  Report Type: 
  Country: None (occurrence: None)
  Receive Date: 20120817
  Receipt Date: 20120813
  Transmission Date: 20120928
  Serious: Yes (Hospitalization)
  Sender: FDA-Public Use
  Company Number: HR-FRI-1000037801

PATIENT
  Age: 70 Year
  Sex: Male

DRUGS (6)
  1. WARFARIN SODIUM [Suspect]
     Dosage: 4.5 MG
  2. WARFARIN SODIUM [Suspect]
     Indication: ATRIAL FIBRILLATION
     Dosage: 3 MG AND 4.5 MG ON ALTERNATE DAYS
     Dates: start: 20060101, end: 20100101
  3. WARFARIN SODIUM [Suspect]
     Dosage: 3 MG
     Dates: start: 20100101
  4. NEBIVOLOL [Suspect]
     Indication: ATRIAL FIBRILLATION
     Dates: start: 20060101
  5. CLOXACILLIN SODIUM [Suspect]
     Indication: THROMBOPHLEBITIS SUPERFICIAL
     Route: 042
     Dates: start: 20101001, end: 20100101
  6. CLOXACILLIN SODIUM [Suspect]
     Route: 048
     Dates: start: 20100101, end: 20100101

REACTIONS (2)
  - THROMBOPHLEBITIS SUPERFICIAL [None]
  - INTERNATIONAL NORMALISED RATIO INCREASED [None]
